FAERS Safety Report 4467113-X (Version None)
Quarter: 2004Q4

REPORT INFORMATION
  Report Type: 
  Country: None (occurrence: None)
  Receive Date: 20041006
  Receipt Date: 20040922
  Transmission Date: 20050328
  Serious: Yes (Death)
  Sender: FDA-Public Use
  Company Number: PHBS2004JP12675

PATIENT
  Age: 27 Year
  Sex: Female

DRUGS (3)
  1. TEGRETOL [Suspect]
     Indication: CONVULSION
     Route: 065
     Dates: start: 20030101
  2. PHENYTOIN [Suspect]
     Indication: CONVULSION
     Route: 065
     Dates: start: 20030101
  3. VALPROATE SODIUM [Suspect]
     Indication: CONVULSION
     Route: 065
     Dates: start: 20030101

REACTIONS (9)
  - BONE MARROW DISORDER [None]
  - DRUG HYPERSENSITIVITY [None]
  - ERYTHEMA [None]
  - GRANULOCYTOPENIA [None]
  - HEPATIC FUNCTION ABNORMAL [None]
  - HEPATOCELLULAR DAMAGE [None]
  - HYPERTHERMIA [None]
  - MULTI-ORGAN FAILURE [None]
  - SEPTIC SHOCK [None]
